FAERS Safety Report 16918204 (Version 2)
Quarter: 2020Q1

REPORT INFORMATION
  Report Type: Spontaneous
  Country: US (occurrence: US)
  Receive Date: 20191015
  Receipt Date: 20200102
  Transmission Date: 20200409
  Serious: Yes (Hospitalization)
  Sender: FDA-Public Use
  Company Number: US-ROCHE-2436890

PATIENT
  Age: 51 Year
  Sex: Female

DRUGS (15)
  1. TACROLIMUS. [Interacting]
     Active Substance: TACROLIMUS
     Dosage: TARGET THE GOAL TROUGH OF 8-10 MG/DL
     Route: 065
     Dates: end: 2016
  2. TACROLIMUS. [Interacting]
     Active Substance: TACROLIMUS
     Route: 065
     Dates: start: 2016, end: 2016
  3. PREDNISONE. [Suspect]
     Active Substance: PREDNISONE
     Route: 065
  4. CIPROFLOXACIN. [Concomitant]
     Active Substance: CIPROFLOXACIN
  5. SULFAMETHOXAZOLE/TRIMETHOPRIM [Suspect]
     Active Substance: SULFAMETHOXAZOLE\TRIMETHOPRIM
     Indication: ANTIFUNGAL PROPHYLAXIS
     Route: 065
     Dates: start: 201512, end: 2016
  6. PREDNISONE. [Suspect]
     Active Substance: PREDNISONE
     Route: 065
     Dates: start: 2016, end: 2016
  7. TACROLIMUS. [Interacting]
     Active Substance: TACROLIMUS
     Route: 065
     Dates: start: 2016, end: 2016
  8. PENTAMIDINE [Concomitant]
     Active Substance: PENTAMIDINE
  9. TACROLIMUS. [Interacting]
     Active Substance: TACROLIMUS
     Indication: PROPHYLAXIS AGAINST TRANSPLANT REJECTION
     Dosage: TAC TROUGH LEVEL WAS REDUCED TO 6-7 NG/DL
     Route: 065
     Dates: start: 2016, end: 2016
  10. TACROLIMUS. [Interacting]
     Active Substance: TACROLIMUS
     Dosage: TARGET TROUGH LEVEL OF 10-12 MG/DL
     Route: 065
     Dates: start: 201512, end: 2016
  11. MYCOPHENOLATE MOFETIL. [Suspect]
     Active Substance: MYCOPHENOLATE MOFETIL
     Indication: PROPHYLAXIS AGAINST TRANSPLANT REJECTION
     Route: 048
     Dates: start: 201512, end: 2016
  12. MYCOPHENOLATE MOFETIL. [Interacting]
     Active Substance: MYCOPHENOLATE MOFETIL
     Route: 048
     Dates: start: 2016, end: 2016
  13. VALGANCICLOVIR. [Interacting]
     Active Substance: VALGANCICLOVIR
     Indication: ANTIVIRAL PROPHYLAXIS
     Route: 065
     Dates: start: 201512, end: 2016
  14. ANTITHYMOCYTE IMMUNOGLOBULIN [Suspect]
     Active Substance: THYMOCYTE IMMUNE GLOBULIN NOS
     Indication: PROPHYLAXIS AGAINST TRANSPLANT REJECTION
     Dosage: 3 DOSES OF 100 MG (1.5 MG/KG)
     Route: 042
     Dates: start: 201512
  15. PREDNISONE. [Suspect]
     Active Substance: PREDNISONE
     Indication: PROPHYLAXIS AGAINST TRANSPLANT REJECTION
     Dosage: CONTINUED TO BE TAPERED
     Route: 065
     Dates: start: 201512, end: 2016

REACTIONS (4)
  - Drug interaction [Unknown]
  - Bone marrow failure [Recovered/Resolved]
  - Tremor [Unknown]
  - Hyperkalaemia [Unknown]

NARRATIVE: CASE EVENT DATE: 2016
